FAERS Safety Report 8900516 (Version 1)
Quarter: 2012Q4

REPORT INFORMATION
  Report Type: 
  Country: US (occurrence: US)
  Receive Date: 20121108
  Receipt Date: 20121108
  Transmission Date: 20130627
  Serious: No
  Sender: FDA-Public Use
  Company Number: US-AMGEN-USASP2012038428

PATIENT
  Age: 56 Year
  Sex: Female
  Weight: 83.9 kg

DRUGS (5)
  1. ENBREL [Suspect]
     Indication: PRODUCT USED FOR UNKNOWN INDICATION
     Dosage: 50 mg/ml, qwk
     Route: 058
  2. ATENOLOL [Concomitant]
     Dosage: 50 mg, UNK
     Route: 048
  3. LEVOTHYROXIN [Concomitant]
     Dosage: 100 mug, UNK
     Route: 048
  4. FISH OIL [Concomitant]
     Dosage: UNK
     Route: 048
  5. MULTIVITAMINS, PLAIN [Concomitant]
     Dosage: UNK
     Route: 048

REACTIONS (4)
  - Injection site erythema [Unknown]
  - Injection site swelling [Unknown]
  - Injection site pain [Unknown]
  - Injection site reaction [Unknown]
